FAERS Safety Report 22116639 (Version 1)
Quarter: 2023Q1

REPORT INFORMATION
  Report Type: Spontaneous
  Country: US (occurrence: US)
  Receive Date: 20230320
  Receipt Date: 20230320
  Transmission Date: 20230418
  Serious: Yes (Other)
  Sender: FDA-Public Use
  Company Number: US-SA-2023SA072660

PATIENT
  Sex: Male

DRUGS (2)
  1. DOCETAXEL [Suspect]
     Active Substance: DOCETAXEL
     Indication: Salvage therapy
  2. GEMCITABINE [Suspect]
     Active Substance: GEMCITABINE
     Indication: Salvage therapy

REACTIONS (2)
  - Osteoporosis [Unknown]
  - Neuropathy peripheral [Unknown]
